FAERS Safety Report 4869928-2 (Version None)
Quarter: 2005Q4

REPORT INFORMATION
  Report Type: 
  Country: None (occurrence: None)
  Receive Date: 20051230
  Receipt Date: 20051005
  Transmission Date: 20060501
  Serious: Yes (Death)
  Sender: FDA-Public Use
  Company Number: US-MERCK-0510USA04452

PATIENT
  Age: 90 Year
  Sex: Female
  Weight: 82 kg

DRUGS (2)
  1. VIOXX [Suspect]
     Indication: PAIN
     Route: 048
     Dates: start: 20010101, end: 20040201
  2. FOSAMAX [Concomitant]
     Route: 065

REACTIONS (2)
  - CARDIOVASCULAR DISORDER [None]
  - DEMENTIA [None]
